FAERS Safety Report 9817636 (Version 1)
Quarter: 2013Q4

REPORT INFORMATION
  Report Type: Spontaneous
  Country: US (occurrence: None)
  Receive Date: 20131223
  Receipt Date: 20131223
  Transmission Date: 20140711
  Serious: No
  Sender: FDA-Public Use
  Company Number: 219414

PATIENT
  Age: 55 Year
  Sex: Female

DRUGS (4)
  1. PICATO [Suspect]
     Indication: ACTINIC KERATOSIS
     Dosage: (DAILY), TOPICAL
     Route: 061
     Dates: start: 20120913, end: 20120915
  2. DIURETIC (DIURETICS) [Concomitant]
  3. MULTIVITAMIN (MULTIVITAMIN /00831701/) [Concomitant]
  4. CALCIUM AND VITAMIN D (CALCIUM D3 /01483701/) [Concomitant]

REACTIONS (5)
  - Tenderness [None]
  - Skin hypertrophy [None]
  - Application site erythema [None]
  - Application site dryness [None]
  - Skin exfoliation [None]
